FAERS Safety Report 4559148-3 (Version None)
Quarter: 2005Q1

REPORT INFORMATION
  Report Type: 
  Country: None (occurrence: None)
  Receive Date: 20050121
  Receipt Date: 20050121
  Transmission Date: 20050727
  Serious: Yes (Death)
  Sender: FDA-Public Use
  Company Number: None

PATIENT
  Sex: Female

DRUGS (1)
  1. RITUXIMAB [Suspect]
     Dosage: INTRATHECAL 25 MG DOSE
     Route: 037
     Dates: start: 20041011

REACTIONS (4)
  - ASTHENIA [None]
  - GRAND MAL CONVULSION [None]
  - HEMIPARESIS [None]
  - HEMIPLEGIA [None]
